FAERS Safety Report 4810597-5 (Version None)
Quarter: 2005Q4

REPORT INFORMATION
  Report Type: 
  Country: None (occurrence: None)
  Receive Date: 20051024
  Receipt Date: 20051013
  Transmission Date: 20060501
  Serious: Yes (Hospitalization, Other)
  Sender: FDA-Public Use
  Company Number: 2005142669

PATIENT
  Age: 31 Year
  Sex: Female
  Weight: 68.0396 kg

DRUGS (2)
  1. DEPO-PROVERA [Suspect]
     Indication: CONTRACEPTION
     Dosage: (1ST INJECTION, EVERY 3 MONTHS); SEE IMAGE
     Dates: start: 19991101, end: 19991101
  2. DEPO-PROVERA [Suspect]
     Indication: CONTRACEPTION
     Dosage: (1ST INJECTION, EVERY 3 MONTHS); SEE IMAGE
     Dates: start: 20041101, end: 20041101

REACTIONS (4)
  - ACNE [None]
  - AMENORRHOEA [None]
  - NEPHROLITHIASIS [None]
  - VAGINAL DISCHARGE [None]
